FAERS Safety Report 4465563-9 (Version None)
Quarter: 2004Q4

REPORT INFORMATION
  Report Type: 
  Country: None (occurrence: None)
  Receive Date: 20041004
  Receipt Date: 20040922
  Transmission Date: 20050328
  Serious: Yes (Other)
  Sender: FDA-Public Use
  Company Number: US-BRISTOL-MYERS SQUIBB COMPANY-12710695

PATIENT
  Age: 53 Year
  Sex: Male
  Weight: 91 kg

DRUGS (8)
  1. SERZONE [Suspect]
     Indication: DEPRESSION
     Route: 048
     Dates: end: 20010901
  2. PROZAC [Concomitant]
  3. LACTULOSE [Concomitant]
  4. SKELAXIN [Concomitant]
  5. IBUPROFEN [Concomitant]
  6. REBETRON [Concomitant]
  7. BENZONATATE [Concomitant]
  8. BIAXIN [Concomitant]

REACTIONS (3)
  - GASTRITIS EROSIVE [None]
  - HEPATIC CIRRHOSIS [None]
  - HEPATITIS C [None]
